FAERS Safety Report 5928450-2 (Version None)
Quarter: 2008Q4

REPORT INFORMATION
  Report Type: 
  Country: None (occurrence: None)
  Receive Date: 20081023
  Receipt Date: 20081020
  Transmission Date: 20090506
  Serious: Yes (Other)
  Sender: FDA-Public Use
  Company Number: GB-PURDUE-GBR_2008_0004499

PATIENT
  Age: 44 Year
  Sex: Female

DRUGS (2)
  1. OXYNORM [Suspect]
     Indication: PAIN
     Dosage: 20 MG, DAILY
     Route: 048
     Dates: start: 20080523, end: 20081007
  2. PHENYTOIN [Concomitant]
     Indication: EPILEPSY
     Dosage: 300 MG, DAILY
     Route: 048
     Dates: start: 19700101

REACTIONS (8)
  - ASTHENIA [None]
  - BLINDNESS [None]
  - DYSPHAGIA [None]
  - DYSPNOEA [None]
  - EYELID FUNCTION DISORDER [None]
  - FEELING ABNORMAL [None]
  - HYPOTONIA [None]
  - LETHARGY [None]
